FAERS Safety Report 18771317 (Version 1)
Quarter: 2021Q1

REPORT INFORMATION
  Report Type: Spontaneous
  Country: US (occurrence: US)
  Receive Date: 20210122
  Receipt Date: 20210122
  Transmission Date: 20210419
  Serious: Yes (Other)
  Sender: FDA-Public Use
  Company Number: US-LUPIN PHARMACEUTICALS INC.-2021-00451

PATIENT
  Age: 37 Year
  Sex: Male

DRUGS (1)
  1. TRIAMCINOLONE [Suspect]
     Active Substance: TRIAMCINOLONE
     Indication: PACHYDERMODACTYLY
     Dosage: 0.5 MILLILITER (0.5 CC OF TRIAMCINOLONE INJECTABLE SUSPENSION 40 MG/ML WAS INJECTED USING A 25?GAUGE
     Route: 065

REACTIONS (1)
  - Extraskeletal ossification [Not Recovered/Not Resolved]
